FAERS Safety Report 7715138-0 (Version None)
Quarter: 2011Q3

REPORT INFORMATION
  Report Type: 
  Country: None (occurrence: None)
  Receive Date: 20110810
  Receipt Date: 20110506
  Transmission Date: 20111222
  Serious: No
  Sender: FDA-Public Use
  Company Number: 1000020802

PATIENT
  Age: 61 Year
  Sex: Female

DRUGS (3)
  1. SAVELLA [Suspect]
     Indication: FIBROMYALGIA
     Dosage: 12.5 MG (12.5 MG, 1 IN 1 D), ORAL
     Route: 048
     Dates: start: 20110501, end: 20110501
  2. HYDROCHLOROTHIAZIDE [Concomitant]
  3. ASPIRIN [Concomitant]

REACTIONS (4)
  - DIZZINESS [None]
  - VISION BLURRED [None]
  - NAUSEA [None]
  - GAIT DISTURBANCE [None]
